FAERS Safety Report 5741892-3 (Version None)
Quarter: 2008Q2

REPORT INFORMATION
  Report Type: 
  Country: None (occurrence: None)
  Receive Date: 20080514
  Receipt Date: 20080514
  Transmission Date: 20081010
  Serious: No
  Sender: FDA-Public Use
  Company Number: None

PATIENT
  Age: 74 Year
  Sex: Female
  Weight: 51.7101 kg

DRUGS (1)
  1. METRONIDAZOLE [Suspect]
     Indication: URINARY TRACT INFECTION
     Dosage: 500 MG.  2 X'S DAILY
     Dates: start: 20080501, end: 20080507

REACTIONS (5)
  - ASTHENIA [None]
  - COORDINATION ABNORMAL [None]
  - DIARRHOEA [None]
  - DIZZINESS [None]
  - NAUSEA [None]
